FAERS Safety Report 10926456 (Version 1)
Quarter: 2015Q1

REPORT INFORMATION
  Report Type: Spontaneous
  Country: DE (occurrence: None)
  Receive Date: 20150316
  Receipt Date: 20150316
  Transmission Date: 20150721
  Serious: Yes (Hospitalization)
  Sender: FDA-Public Use
  Company Number: DE-SEPTODONT-201502614

PATIENT
  Age: 20 Year
  Sex: Male

DRUGS (2)
  1. ULTRACAIN D-S [Suspect]
     Active Substance: ARTICAINE HYDROCHLORIDE\EPINEPHRINE BITARTRATE
     Indication: LOCAL ANAESTHESIA
     Route: 004
  2. SEPTANEST MIT ADRENALIN [Suspect]
     Active Substance: ARTICAINE HYDROCHLORIDE\EPINEPHRINE BITARTRATE
     Indication: LOCAL ANAESTHESIA
     Route: 004

REACTIONS (7)
  - Cardiovascular disorder [None]
  - Fatigue [None]
  - Feeling abnormal [None]
  - Hypotension [None]
  - Headache [None]
  - Bradycardia [None]
  - Asthenia [None]

NARRATIVE: CASE EVENT DATE: 20141125
